FAERS Safety Report 24849759 (Version 1)
Quarter: 2025Q1

REPORT INFORMATION
  Report Type: Spontaneous
  Country: US (occurrence: US)
  Receive Date: 20250116
  Receipt Date: 20250116
  Transmission Date: 20250409
  Serious: No
  Sender: BRECKENRIDGE PHARMACEUTICAL, INC.
  Company Number: US-Breckenridge Pharmaceutical, Inc.-2169129

PATIENT
  Age: 57 Year
  Sex: Female
  Weight: 60 kg

DRUGS (7)
  1. DULOXETINE HYDROCHLORIDE [Suspect]
     Active Substance: DULOXETINE HYDROCHLORIDE
     Indication: Obsessive-compulsive disorder
  2. MIRTAZAPINE [Concomitant]
     Active Substance: MIRTAZAPINE
  3. LISINOPRIL [Concomitant]
     Active Substance: LISINOPRIL
  4. GLIPIZIDE [Concomitant]
     Active Substance: GLIPIZIDE
  5. ATENOLOL [Concomitant]
     Active Substance: ATENOLOL
  6. METFORMIN [Concomitant]
     Active Substance: METFORMIN HYDROCHLORIDE
  7. CLONAZEPAM [Concomitant]
     Active Substance: CLONAZEPAM

REACTIONS (2)
  - Therapeutic product effect incomplete [Unknown]
  - Vision blurred [Unknown]
